FAERS Safety Report 5131640-2 (Version None)
Quarter: 2006Q4

REPORT INFORMATION
  Report Type: 
  Country: None (occurrence: None)
  Receive Date: 20061016
  Receipt Date: 20060927
  Transmission Date: 20070319
  Serious: Yes (Other)
  Sender: FDA-Public Use
  Company Number: AU200610000560

PATIENT
  Age: 31 Year
  Sex: Male

DRUGS (3)
  1. ZYPREXA [Suspect]
     Indication: SCHIZOPHRENIA, PARANOID TYPE
     Dosage: 60 MG DAILY (1/D) ORAL
     Route: 048
     Dates: start: 19980101
  2. ZYPREXA [Suspect]
     Indication: SCHIZOPHRENIA, PARANOID TYPE
     Dosage: 10 MG AS NEEDED INTRAMUSCULAR
     Route: 030
  3. AMISULPRIDE [Concomitant]

REACTIONS (9)
  - ACNE [None]
  - AKATHISIA [None]
  - EXTRAPYRAMIDAL DISORDER [None]
  - NEUROLEPTIC MALIGNANT SYNDROME [None]
  - PHYSICAL ASSAULT [None]
  - PRESCRIBED OVERDOSE [None]
  - SALIVARY HYPERSECRETION [None]
  - SUICIDAL BEHAVIOUR [None]
  - URTICARIA [None]
